FAERS Safety Report 10237069 (Version 1)
Quarter: 2014Q2

REPORT INFORMATION
  Report Type: Spontaneous
  Country: CO (occurrence: CO)
  Receive Date: 20140613
  Receipt Date: 20140613
  Transmission Date: 20141212
  Serious: Yes (Other)
  Sender: FDA-Public Use
  Company Number: CO-PFIZER INC-2014161361

PATIENT
  Age: 80 Year
  Sex: Male

DRUGS (1)
  1. EPAMIN [Suspect]
     Dosage: 100 MG, 1X/DAY
     Route: 048
     Dates: start: 2004

REACTIONS (1)
  - Ischaemia [Unknown]
